FAERS Safety Report 20663170 (Version 1)
Quarter: 2022Q2

REPORT INFORMATION
  Report Type: Spontaneous
  Country: US (occurrence: None)
  Receive Date: 20220401
  Receipt Date: 20220401
  Transmission Date: 20220721
  Serious: Yes (Hospitalization)
  Sender: FDA-Public Use
  Company Number: None

PATIENT
  Sex: Female
  Weight: 85.5 kg

DRUGS (1)
  1. CISPLATIN [Suspect]
     Active Substance: CISPLATIN
     Dates: start: 20220131, end: 20220221

REACTIONS (6)
  - Dehydration [None]
  - Neutropenia [None]
  - Body temperature increased [None]
  - Renal impairment [None]
  - Hypophagia [None]
  - Vomiting [None]

NARRATIVE: CASE EVENT DATE: 20220311
